FAERS Safety Report 16352947 (Version 2)
Quarter: 2019Q2

REPORT INFORMATION
  Report Type: Spontaneous
  Country: US (occurrence: US)
  Receive Date: 20190524
  Receipt Date: 20190605
  Transmission Date: 20190711
  Serious: No
  Sender: FDA-Public Use
  Company Number: US-PFIZER INC-2019218620

PATIENT
  Age: 59 Year
  Sex: Male
  Weight: 106.59 kg

DRUGS (4)
  1. CHANTIX [Suspect]
     Active Substance: VARENICLINE TARTRATE
     Indication: SMOKING CESSATION THERAPY
     Dosage: 0.5 AND 10
  2. VALIUM [Concomitant]
     Active Substance: DIAZEPAM
     Indication: ANXIETY
     Dosage: 20 MG, DAILY
     Route: 048
  3. NICOTINE POLACRILEX [Concomitant]
     Active Substance: NICOTINE
     Dosage: 4 MG, UNK
  4. TEMAZEPAM. [Concomitant]
     Active Substance: TEMAZEPAM
     Indication: INSOMNIA
     Dosage: 60 MG, 1X/DAY AT BEDTIME
     Route: 048

REACTIONS (1)
  - Drug ineffective [Unknown]
